FAERS Safety Report 8172227-7 (Version None)
Quarter: 2012Q1

REPORT INFORMATION
  Report Type: 
  Country: None (occurrence: None)
  Receive Date: 20120228
  Receipt Date: 20120216
  Transmission Date: 20120608
  Serious: Yes (Hospitalization)
  Sender: FDA-Public Use
  Company Number: GR-CELGENEUS-066-C5013-12011981

PATIENT
  Sex: Female
  Weight: 61 kg

DRUGS (14)
  1. MELPHALAN [Suspect]
     Indication: MULTIPLE MYELOMA
     Dosage: 6 MILLIGRAM
     Route: 065
     Dates: start: 20101206
  2. PREDNISONE [Suspect]
     Indication: MULTIPLE MYELOMA
     Dosage: 105 MILLIGRAM
     Route: 065
     Dates: start: 20101206
  3. THALIDOMIDE [Suspect]
     Dosage: 25 MILLIGRAM
     Route: 048
     Dates: start: 20120105, end: 20120110
  4. SULFAMETHOXAZOLE [Concomitant]
     Indication: PROPHYLAXIS
     Dosage: 800/160MG
     Route: 048
     Dates: start: 20101126
  5. LACTULOSE [Concomitant]
     Indication: CONSTIPATION
     Dosage: 30 MILLILITER
     Route: 048
     Dates: start: 20101222
  6. PREDNISONE [Suspect]
     Dosage: 120 MILLIGRAM
     Route: 065
     Dates: start: 20120105, end: 20120108
  7. ASPIRIN [Concomitant]
     Dosage: 100 MILLIGRAM
     Route: 048
     Dates: start: 20101229
  8. MELPHALAN [Suspect]
     Dosage: 6 MILLIGRAM
     Route: 065
     Dates: start: 20120105, end: 20120108
  9. VALACICLOVIR [Concomitant]
     Indication: PROPHYLAXIS
     Dosage: 500 MILLIGRAM
     Route: 048
     Dates: start: 20101126
  10. ALLOPURINOL [Concomitant]
     Dosage: 100 MILLIGRAM
     Route: 048
     Dates: start: 20101126
  11. RABEPRAZOLE SODIUM [Concomitant]
     Indication: GASTRITIS PROPHYLAXIS
     Dosage: 20 MILLIGRAM
     Route: 048
     Dates: start: 20101126
  12. FLUTICASONE PROPIONATE [Concomitant]
     Dosage: 125 MICROGRAM
     Route: 055
     Dates: start: 20060101
  13. THALIDOMIDE [Suspect]
     Indication: MULTIPLE MYELOMA
     Dosage: 100 MILLIGRAM
     Route: 048
     Dates: start: 20101206
  14. TIOTROPIUM [Concomitant]
     Indication: CHRONIC OBSTRUCTIVE PULMONARY DISEASE
     Dosage: 18 MILLIGRAM
     Route: 048
     Dates: start: 20060101

REACTIONS (1)
  - BREAST CANCER IN SITU [None]
